FAERS Safety Report 11293567 (Version 3)
Quarter: 2015Q3

REPORT INFORMATION
  Report Type: Spontaneous
  Country: US (occurrence: US)
  Receive Date: 20150722
  Receipt Date: 20150909
  Transmission Date: 20151125
  Serious: Yes (Other)
  Sender: FDA-Public Use
  Company Number: US-009507513-1507USA008312

PATIENT
  Age: 80 Year
  Sex: Female

DRUGS (2)
  1. ASMANEX [Suspect]
     Active Substance: MOMETASONE FUROATE
     Dosage: 2 PUFFS A DAY
     Route: 055
     Dates: start: 201102
  2. ASMANEX [Suspect]
     Active Substance: MOMETASONE FUROATE
     Indication: ASTHMA
     Dosage: 1 PUFF EVERY DAY
     Route: 055

REACTIONS (5)
  - Metastatic neoplasm [Not Recovered/Not Resolved]
  - Metastatic uterine cancer [Not Recovered/Not Resolved]
  - Endometrial cancer [Unknown]
  - Urinary bladder polyp [Unknown]
  - Uterine cancer [Not Recovered/Not Resolved]

NARRATIVE: CASE EVENT DATE: 201406
